FAERS Safety Report 17892129 (Version 1)
Quarter: 2020Q2

REPORT INFORMATION
  Report Type: Spontaneous
  Country: GB (occurrence: GB)
  Receive Date: 20200612
  Receipt Date: 20200612
  Transmission Date: 20200714
  Serious: Yes (Other)
  Sender: FDA-Public Use
  Company Number: NVSC2020GB164104

PATIENT
  Age: 24 Year
  Sex: Female
  Weight: 100 kg

DRUGS (1)
  1. PHENOXYMETHYLPENICILLIN POTASSIUM [Suspect]
     Active Substance: PENICILLIN V POTASSIUM
     Indication: TONSILLITIS BACTERIAL
     Dosage: 2000 MG, QD (250 MG TABLET. TWO TO BE TAKEN FOUR TIMES A DAY)
     Route: 048
     Dates: start: 20200327, end: 20200329

REACTIONS (4)
  - Eye swelling [Unknown]
  - Lip swelling [Unknown]
  - Rash pruritic [Unknown]
  - Hypersensitivity [Recovered/Resolved with Sequelae]

NARRATIVE: CASE EVENT DATE: 20200328
